FAERS Safety Report 6527240-X (Version None)
Quarter: 2010Q1

REPORT INFORMATION
  Report Type: 
  Country: None (occurrence: None)
  Receive Date: 20100104
  Receipt Date: 20100104
  Transmission Date: 20100710
  Serious: Yes (Death)
  Sender: FDA-Public Use
  Company Number: None

PATIENT
  Age: 18 Year
  Sex: Female
  Weight: 61.2356 kg

DRUGS (1)
  1. NUVARING [Suspect]

REACTIONS (1)
  - HEPATIC CANCER STAGE IV [None]
